FAERS Safety Report 25467536 (Version 1)
Quarter: 2025Q2

REPORT INFORMATION
  Report Type: Spontaneous
  Country: US (occurrence: None)
  Receive Date: 20250621
  Receipt Date: 20250621
  Transmission Date: 20250717
  Serious: Yes (Life-Threatening)
  Sender: FDA-CTU
  Company Number: None

PATIENT
  Age: 75 Year
  Sex: Female
  Weight: 54 kg

DRUGS (9)
  1. JARDIANCE [Suspect]
     Active Substance: EMPAGLIFLOZIN
     Indication: Blood glucose abnormal
     Route: 048
     Dates: start: 20250604, end: 20250619
  2. Lisinopril metformin [Concomitant]
  3. THYROXINE [Concomitant]
     Active Substance: LEVOTHYROXINE
  4. UBIQUINOL [Concomitant]
     Active Substance: UBIQUINOL
  5. ASPIRIN [Concomitant]
     Active Substance: ASPIRIN
  6. MAGNESIUM [Concomitant]
     Active Substance: MAGNESIUM
  7. Omega 3 fish oil 4 gm [Concomitant]
  8. Vitamin D3 5000 IU Creatine monohydrate 5 gm [Concomitant]
  9. CREATINE MONOHYDRATE [Concomitant]
     Active Substance: CREATINE MONOHYDRATE

REACTIONS (6)
  - Hypovolaemia [None]
  - Dehydration [None]
  - Electrolyte imbalance [None]
  - Acute kidney injury [None]
  - Cardiovascular disorder [None]
  - Stomatitis [None]

NARRATIVE: CASE EVENT DATE: 20250620
